FAERS Safety Report 18988149 (Version 2)
Quarter: 2021Q2

REPORT INFORMATION
  Report Type: Spontaneous
  Country: US (occurrence: US)
  Receive Date: 20210309
  Receipt Date: 20210517
  Transmission Date: 20210717
  Serious: Yes (Other)
  Sender: FDA-Public Use
  Company Number: US-GLAXOSMITHKLINE-US2021GSK036277

PATIENT
  Sex: Female

DRUGS (7)
  1. ZANTAC [Suspect]
     Active Substance: RANITIDINE HYDROCHLORIDE
     Indication: HELICOBACTER INFECTION
     Dosage: UNK UNK, QD
     Route: 065
     Dates: start: 198409, end: 199209
  2. RANITIDINE TABLETS [Suspect]
     Active Substance: RANITIDINE HYDROCHLORIDE
     Indication: HELICOBACTER INFECTION
     Dosage: UNK UNK, QD
     Route: 065
     Dates: start: 199209, end: 199709
  3. RANITIDINE CAPSULE [Suspect]
     Active Substance: RANITIDINE
     Indication: HELICOBACTER INFECTION
     Dosage: UNK UNK, QD
     Route: 065
     Dates: start: 198409, end: 199209
  4. RANITIDINE. [Suspect]
     Active Substance: RANITIDINE
     Indication: HELICOBACTER INFECTION
     Dosage: UNK, QD
     Route: 065
     Dates: start: 199209, end: 199709
  5. ZANTAC [Suspect]
     Active Substance: RANITIDINE HYDROCHLORIDE
     Indication: HELICOBACTER INFECTION
     Dosage: UNK UNK, QD
     Route: 065
     Dates: start: 198409, end: 199209
  6. RANITIDINE. [Suspect]
     Active Substance: RANITIDINE
     Indication: HELICOBACTER INFECTION
     Dosage: UNK UNK, QD
     Route: 065
     Dates: start: 199209, end: 199709
  7. RANITIDINE. [Suspect]
     Active Substance: RANITIDINE
     Indication: HELICOBACTER INFECTION
     Dosage: UNK UNK, QD
     Route: 065
     Dates: start: 199209, end: 199709

REACTIONS (1)
  - Breast cancer [Unknown]
